FAERS Safety Report 22537140 (Version 1)
Quarter: 2023Q2

REPORT INFORMATION
  Report Type: Report from Study
  Country: AU (occurrence: AU)
  Receive Date: 20230608
  Receipt Date: 20230608
  Transmission Date: 20230722
  Serious: Yes (Hospitalization)
  Sender: FDA-Public Use
  Company Number: AU-PFIZER INC-PV202300099209

PATIENT
  Age: 6 Year
  Sex: Male
  Weight: 18.2 kg

DRUGS (9)
  1. IRINOTECAN HYDROCHLORIDE [Suspect]
     Active Substance: IRINOTECAN HYDROCHLORIDE
     Indication: Embryonal rhabdomyosarcoma
     Dosage: 50MG/M2 OR PER PROTOCOL ON D1-5 OF CYCLES 2, 4,6, 7, 9, 11, 13
  2. TEMSIROLIMUS [Suspect]
     Active Substance: TEMSIROLIMUS
     Indication: Embryonal rhabdomyosarcoma
     Dosage: 15MG/M2 OR PER PROTOCOL D1,8,15, FOR CYCLES 1-4, CYCLES 8-10, CYCLES 11-14 (CYCLE = 21 DAYS)
     Dates: start: 20211202
  3. TEMSIROLIMUS [Suspect]
     Active Substance: TEMSIROLIMUS
     Dosage: CYCLE 14, TOTAL DOSE ADMINISTERED THIS COURSE: 27MG
     Dates: start: 20220913, end: 20220926
  4. VINCRISTINE SULFATE [Suspect]
     Active Substance: VINCRISTINE SULFATE
     Indication: Embryonal rhabdomyosarcoma
     Dosage: OR PER PROTOCOL ON D1,8,15 FOR CYCLES (C) 1-4, 8,11, ON D1 OF C5,10,12,14, ON D1,8 OF C6,7,9,13
     Dates: start: 20211202
  5. VINCRISTINE SULFATE [Suspect]
     Active Substance: VINCRISTINE SULFATE
     Dosage: DAY 1 CYCLE 14
     Dates: start: 20220913, end: 20220913
  6. CYCLOPHOSPHAMIDE [Suspect]
     Active Substance: CYCLOPHOSPHAMIDE
     Indication: Embryonal rhabdomyosarcoma
     Dosage: 1200MG/M2 OR PER PROTOCOL ON D1 OF CYCLES 1, 3, 5, 8, 10, 12 AND 14
     Dates: start: 20211202
  7. CYCLOPHOSPHAMIDE [Suspect]
     Active Substance: CYCLOPHOSPHAMIDE
     Dosage: DAY 1 CYCLE 14
     Dates: start: 20220913, end: 20220913
  8. DACTINOMYCIN [Suspect]
     Active Substance: DACTINOMYCIN
     Indication: Embryonal rhabdomyosarcoma
     Dosage: 0.05MG/KG OR PER PROTOCOL ON D1 OF CYCLES1, 3, 5, 8, 10, 12 AND 14
     Dates: start: 20211202
  9. DACTINOMYCIN [Suspect]
     Active Substance: DACTINOMYCIN
     Dosage: DAY 1 CYCLE 14
     Dates: start: 20220913, end: 20220913

REACTIONS (1)
  - Cystitis noninfective [Not Recovered/Not Resolved]

NARRATIVE: CASE EVENT DATE: 20220929
